FAERS Safety Report 23594608 (Version 1)
Quarter: 2024Q1

REPORT INFORMATION
  Report Type: Spontaneous
  Country: TR (occurrence: TR)
  Receive Date: 20240305
  Receipt Date: 20240305
  Transmission Date: 20240409
  Serious: Yes (Other)
  Sender: FDA-Public Use
  Company Number: TR-BAYER-2024A033043

PATIENT
  Age: 79 Year
  Sex: Female

DRUGS (2)
  1. XARELTO [Suspect]
     Active Substance: RIVAROXABAN
     Indication: Product used for unknown indication
     Dosage: 20 MG
     Route: 048
  2. XARELTO [Suspect]
     Active Substance: RIVAROXABAN
     Dosage: 15 MG
     Route: 048

REACTIONS (3)
  - Cerebrovascular accident [Unknown]
  - Epistaxis [Unknown]
  - Glomerular filtration rate decreased [Unknown]
